FAERS Safety Report 6265918-6 (Version None)
Quarter: 2009Q3

REPORT INFORMATION
  Report Type: 
  Country: None (occurrence: None)
  Receive Date: 20090709
  Receipt Date: 20090709
  Transmission Date: 20100115
  Serious: Yes (Death)
  Sender: FDA-Public Use
  Company Number: None

PATIENT
  Sex: Male

DRUGS (2)
  1. CLOZARIL [Suspect]
     Indication: SCHIZOAFFECTIVE DISORDER
     Dosage: 100 MG AND 250 MG Q AM + Q HS PO
     Route: 048
     Dates: start: 20070924, end: 20070929
  2. GEODON [Suspect]
     Indication: SCHIZOAFFECTIVE DISORDER
     Dosage: 40 MG AND 80 MG Q AM AND Q HS PO
     Route: 048
     Dates: start: 20070418, end: 20070929

REACTIONS (4)
  - CORONARY ARTERY DISEASE [None]
  - HEPATIC STEATOSIS [None]
  - HYPERTENSION [None]
  - MUSCLE TWITCHING [None]
